FAERS Safety Report 4972999-6 (Version None)
Quarter: 2006Q2

REPORT INFORMATION
  Report Type: 
  Country: None (occurrence: None)
  Receive Date: 20060414
  Receipt Date: 20060404
  Transmission Date: 20061013
  Serious: Yes (Hospitalization, Disabling)
  Sender: FDA-Public Use
  Company Number: FR-GLAXOSMITHKLINE-B0418978A

PATIENT
  Age: 80 Year
  Sex: Male

DRUGS (6)
  1. AVANDAMET [Suspect]
     Dosage: 1TAB PER DAY
     Route: 048
     Dates: start: 20050405, end: 20060309
  2. ZYLORIC [Concomitant]
     Dosage: 200MG PER DAY
     Route: 048
  3. APROVEL [Concomitant]
     Dosage: 75MG PER DAY
     Route: 048
  4. VASTAREL [Concomitant]
     Route: 048
     Dates: start: 20051101
  5. ZOCOR [Concomitant]
     Dosage: 20MG PER DAY
     Route: 048
  6. OGAST [Concomitant]
     Indication: GASTRITIS
     Dosage: 30MG PER DAY
     Route: 048

REACTIONS (4)
  - MACULAR OEDEMA [None]
  - RETINAL DISORDER [None]
  - VISUAL ACUITY REDUCED [None]
  - VISUAL FIELD DEFECT [None]
